FAERS Safety Report 10650219 (Version 6)
Quarter: 2015Q4

REPORT INFORMATION
  Report Type: Spontaneous
  Country: US (occurrence: US)
  Receive Date: 20141212
  Receipt Date: 20151223
  Transmission Date: 20160304
  Serious: Yes (Hospitalization, Other)
  Sender: FDA-Public Use
  Company Number: US-GLAXOSMITHKLINE-US2014GSK035281

PATIENT
  Age: 63 Year
  Sex: Female

DRUGS (12)
  1. EXCEDRIN MIGRAINE [Suspect]
     Active Substance: ACETAMINOPHEN\ASPIRIN\CAFFEINE
     Indication: HEADACHE
  2. LYRICA [Suspect]
     Active Substance: PREGABALIN
     Indication: BURNING SENSATION
  3. CYMBALTA [Concomitant]
     Active Substance: DULOXETINE HYDROCHLORIDE
  4. PERCOCET [Concomitant]
     Active Substance: ACETAMINOPHEN\OXYCODONE HYDROCHLORIDE
     Indication: HEADACHE
  5. IMITREX [Suspect]
     Active Substance: SUMATRIPTAN\SUMATRIPTAN SUCCINATE
     Indication: HEADACHE
  6. EXCEDRIN MIGRAINE [Suspect]
     Active Substance: ACETAMINOPHEN\ASPIRIN\CAFFEINE
     Indication: MIGRAINE
  7. LYRICA [Suspect]
     Active Substance: PREGABALIN
     Indication: PAIN
     Dosage: 75 MG, TID
  8. IMITREX [Suspect]
     Active Substance: SUMATRIPTAN\SUMATRIPTAN SUCCINATE
     Indication: MIGRAINE
  9. CELEBREX [Suspect]
     Active Substance: CELECOXIB
     Indication: ARTHRITIS
  10. DEPAKOTE [Concomitant]
     Active Substance: DIVALPROEX SODIUM
  11. XANAX [Concomitant]
     Active Substance: ALPRAZOLAM
  12. PERCOCET [Concomitant]
     Active Substance: ACETAMINOPHEN\OXYCODONE HYDROCHLORIDE
     Indication: PAIN

REACTIONS (26)
  - Cerebral artery occlusion [Recovered/Resolved]
  - Speech disorder [Recovered/Resolved]
  - Migraine [Not Recovered/Not Resolved]
  - VIIth nerve paralysis [Unknown]
  - Angiopathy [Recovered/Resolved]
  - Pain in extremity [Not Recovered/Not Resolved]
  - Nausea [Not Recovered/Not Resolved]
  - Mobility decreased [Not Recovered/Not Resolved]
  - Disability [Not Recovered/Not Resolved]
  - Cerebral infarction [Recovered/Resolved]
  - Diplegia [Unknown]
  - Hemiplegia [Recovered/Resolved]
  - Confusional state [Recovered/Resolved]
  - Headache [Not Recovered/Not Resolved]
  - Pain [Recovered/Resolved]
  - Transient ischaemic attack [Not Recovered/Not Resolved]
  - Tongue paralysis [Unknown]
  - Loss of consciousness [Recovered/Resolved]
  - Peripheral coldness [Recovered/Resolved]
  - Head discomfort [Recovered/Resolved]
  - Drug ineffective [Not Recovered/Not Resolved]
  - Cerebrovascular accident [Recovered/Resolved with Sequelae]
  - Hypoaesthesia [Not Recovered/Not Resolved]
  - Burning sensation [Recovered/Resolved]
  - Muscular weakness [Not Recovered/Not Resolved]
  - Drug effect decreased [Recovered/Resolved]

NARRATIVE: CASE EVENT DATE: 20130902
